FAERS Safety Report 8308227-3 (Version None)
Quarter: 2012Q2

REPORT INFORMATION
  Report Type: 
  Country: None (occurrence: None)
  Receive Date: 20120424
  Receipt Date: 20120418
  Transmission Date: 20120825
  Serious: Yes (Other)
  Sender: FDA-Public Use
  Company Number: JP-PFIZER INC-2012096479

PATIENT
  Age: 40 Year
  Sex: Female

DRUGS (1)
  1. CORTRIL [Suspect]
     Dosage: 10 MG, UNK
     Route: 048

REACTIONS (1)
  - DIABETES INSIPIDUS [None]
